FAERS Safety Report 9520487 (Version 1)
Quarter: 2013Q3

REPORT INFORMATION
  Report Type: Spontaneous
  Country: US (occurrence: US)
  Receive Date: 20130913
  Receipt Date: 20130913
  Transmission Date: 20140515
  Serious: No
  Sender: FDA-Public Use
  Company Number: US-009507513-1309USA004355

PATIENT
  Age: 80 Year
  Sex: Female

DRUGS (1)
  1. NASONEX [Suspect]
     Indication: RHINITIS
     Dosage: UNK, NASONEX AEROSOL(EA)
     Route: 045

REACTIONS (1)
  - Atrial fibrillation [Not Recovered/Not Resolved]
